FAERS Safety Report 11304254 (Version 1)
Quarter: 2015Q3

REPORT INFORMATION
  Report Type: Spontaneous
  Country: US (occurrence: US)
  Receive Date: 20150723
  Receipt Date: 20150723
  Transmission Date: 20151125
  Serious: No
  Sender: FDA-Public Use
  Company Number: US-JNJFOC-20150307218

PATIENT
  Sex: Female

DRUGS (3)
  1. PEPCID AC MAXIMUM STRENGTH [Suspect]
     Active Substance: FAMOTIDINE
     Indication: DYSPEPSIA
     Dosage: 20 MG TABLET
     Route: 048
     Dates: end: 20150305
  2. CARAFATE [Concomitant]
     Active Substance: SUCRALFATE
     Indication: GASTRIC DISORDER
     Route: 065
  3. GAVISCON (ANTACID) [Concomitant]
     Indication: ANTACID THERAPY
     Route: 065

REACTIONS (2)
  - Abdominal discomfort [Recovered/Resolved]
  - Incorrect dose administered [Unknown]
